FAERS Safety Report 8317949-X (Version None)
Quarter: 2012Q2

REPORT INFORMATION
  Report Type: 
  Country: None (occurrence: None)
  Receive Date: 20120427
  Receipt Date: 20120418
  Transmission Date: 20120825
  Serious: Yes (Life-Threatening)
  Sender: FDA-Public Use
  Company Number: CO-SANOFI-AVENTIS-2012SA028242

PATIENT
  Age: 70 Year
  Sex: Male

DRUGS (6)
  1. ENOXAPARIN SODIUM [Suspect]
     Route: 058
  2. ENOXAPARIN SODIUM [Suspect]
     Indication: ACUTE CORONARY SYNDROME
     Route: 040
     Dates: start: 20120418
  3. IRBESARTAN [Concomitant]
     Indication: ACUTE CORONARY SYNDROME
     Route: 048
  4. ENOXAPARIN SODIUM [Suspect]
     Route: 040
     Dates: start: 20120418
  5. ENOXAPARIN SODIUM [Suspect]
     Route: 058
  6. ASPIRIN [Concomitant]
     Indication: ACUTE CORONARY SYNDROME
     Route: 048

REACTIONS (1)
  - CORONARY ARTERY THROMBOSIS [None]
